FAERS Safety Report 7138426-8 (Version None)
Quarter: 2010Q4

REPORT INFORMATION
  Report Type: 
  Country: None (occurrence: None)
  Receive Date: 20101110
  Receipt Date: 20101026
  Transmission Date: 20110411
  Serious: Yes (Hospitalization)
  Sender: FDA-Public Use
  Company Number: 2010PROUSA00105

PATIENT
  Age: 76 Year
  Weight: 113.4 kg

DRUGS (5)
  1. PROVENGE [Suspect]
     Indication: PROSTATE CANCER METASTATIC
     Dosage: 250 ML, SINGLE, INTRAVENOUS
     Route: 042
     Dates: start: 20100604, end: 20100604
  2. PROVENGE [Suspect]
     Indication: PROSTATE CANCER METASTATIC
     Dosage: 250 ML, SINGLE, INTRAVENOUS
     Route: 042
     Dates: start: 20100618, end: 20100618
  3. PROVENGE [Suspect]
     Indication: PROSTATE CANCER METASTATIC
     Dosage: 250 ML, SINGLE, INTRAVENOUS
     Route: 042
     Dates: start: 20100715, end: 20100715
  4. PROVENGE [Suspect]
  5. PROVENGE [Suspect]

REACTIONS (3)
  - CALCULUS URINARY [None]
  - HAEMATURIA [None]
  - SMALL INTESTINAL OBSTRUCTION [None]
